FAERS Safety Report 6305547-9 (Version None)
Quarter: 2009Q3

REPORT INFORMATION
  Report Type: 
  Country: None (occurrence: None)
  Receive Date: 20090807
  Receipt Date: 20090728
  Transmission Date: 20100115
  Serious: Yes (Other)
  Sender: FDA-Public Use
  Company Number: 2009AP003072

PATIENT
  Sex: Female

DRUGS (1)
  1. CIPROFLOXACIN HYDROCHLORIDE [Suspect]
     Indication: PERITONITIS
     Dosage: 500 MG; QD PO, 500 MG; TAB; PO; QD
     Route: 048
     Dates: start: 20090720, end: 20090727

REACTIONS (5)
  - DIZZINESS [None]
  - DRY SKIN [None]
  - FLUID IMBALANCE [None]
  - HYPOTENSION [None]
  - VISION BLURRED [None]
